FAERS Safety Report 20777899 (Version 1)
Quarter: 2022Q2

REPORT INFORMATION
  Report Type: Spontaneous
  Country: PT (occurrence: PT)
  Receive Date: 20220503
  Receipt Date: 20220503
  Transmission Date: 20220721
  Serious: Yes (Other)
  Sender: FDA-Public Use
  Company Number: None

PATIENT
  Age: 12 Year
  Sex: Male
  Weight: 87.5 kg

DRUGS (5)
  1. VANCOMYCIN [Suspect]
     Active Substance: VANCOMYCIN
     Indication: Brain abscess
     Dosage: 720MG, 4X A DAY
     Route: 042
     Dates: start: 20210528
  2. CEFTRIAXONE [Concomitant]
     Active Substance: CEFTRIAXONE
  3. LEVETIRACETAM [Concomitant]
     Active Substance: LEVETIRACETAM
  4. METRONIDAZOLE [Concomitant]
     Active Substance: METRONIDAZOLE
  5. DEXAMETHASONE [Concomitant]
     Active Substance: DEXAMETHASONE

REACTIONS (1)
  - Antibiotic level below therapeutic [Unknown]

NARRATIVE: CASE EVENT DATE: 20210528
